FAERS Safety Report 7907558-6 (Version None)
Quarter: 2011Q4

REPORT INFORMATION
  Report Type: 
  Country: None (occurrence: None)
  Receive Date: 20111110
  Receipt Date: 20111102
  Transmission Date: 20120403
  Serious: Yes (Hospitalization, Other)
  Sender: FDA-Public Use
  Company Number: PHEH2007US07738

PATIENT
  Sex: Female

DRUGS (46)
  1. NAVELBINE [Concomitant]
     Indication: NON-SMALL CELL LUNG CANCER
     Dates: start: 20030801, end: 20040901
  2. HEPARIN [Concomitant]
  3. UNASYN [Concomitant]
  4. LEUKINE [Concomitant]
     Dosage: 500 MCG, UNK
     Dates: start: 20070705, end: 20070711
  5. TAXOL [Concomitant]
     Indication: NON-SMALL CELL LUNG CANCER
     Dates: start: 20051001
  6. LIDOCAINE [Concomitant]
     Dosage: 5.4 ML 2%
     Dates: start: 20061211, end: 20061211
  7. MIDAZOLAM [Concomitant]
  8. NAPROXEN (ALEVE) [Concomitant]
  9. DURAGESIC-100 [Concomitant]
  10. VERSED [Concomitant]
     Dosage: 2 MG, UNK
     Dates: start: 20070205, end: 20070205
  11. PROPOFOL [Concomitant]
     Dosage: 50 MG,
     Dates: start: 20061211, end: 20061211
  12. PROMETHAZINE [Concomitant]
     Dosage: 12.5 MG,
     Route: 042
     Dates: start: 20061211, end: 20061211
  13. LORTAB [Concomitant]
  14. LOVENOX [Concomitant]
     Dosage: 30 MG, Q24H
  15. DECADRON [Concomitant]
  16. SUBLIMAZE PRESERVATIVE FREE [Concomitant]
     Dosage: 1 ML,
     Dates: start: 20061211, end: 20061211
  17. LIDOCAINE [Concomitant]
     Dosage: 5.4 ML 2%
     Dates: start: 20070205, end: 20070205
  18. PROMETHAZINE [Concomitant]
     Dosage: 12.5 MG, UNK
     Route: 042
     Dates: start: 20070205, end: 20070205
  19. PREVACID [Concomitant]
     Dosage: 30 MG, DAILY
     Route: 048
  20. ACETAMINOPHEN [Concomitant]
  21. ONDANSETRON [Concomitant]
     Dosage: 4 MG, Q6H, PRN
  22. NEUPOGEN [Concomitant]
     Dosage: 300 MCG
     Dates: start: 20070703, end: 20070717
  23. COUMADIN [Concomitant]
  24. ZOMETA [Suspect]
     Indication: HYPERCALCAEMIA OF MALIGNANCY
     Dosage: 4 MG MONTLY
     Dates: start: 20031125, end: 20070323
  25. AVASTIN [Concomitant]
     Indication: NON-SMALL CELL LUNG CANCER
     Dates: start: 20030801, end: 20040901
  26. TAXOTERE [Concomitant]
     Indication: NON-SMALL CELL LUNG CANCER
     Dates: start: 20050801, end: 20050901
  27. PROPOFOL [Concomitant]
     Dosage: 50 MG, UNK
     Dates: start: 20070205, end: 20070205
  28. RESTORIL [Concomitant]
     Dosage: 12.5 MG, Q6H, PRN
  29. CARBIDOPA + LEVODOPA [Concomitant]
     Dosage: 25/100 ONE TABLET EVERY BEDTIME
  30. NARCAN [Concomitant]
  31. COMPAZINE [Concomitant]
  32. VERSED [Concomitant]
     Dosage: 2 MG,
     Dates: start: 20061211, end: 20061211
  33. SUBLIMAZE PRESERVATIVE FREE [Concomitant]
     Dosage: 1 MG, UNK
     Dates: start: 20070205, end: 20070205
  34. CIPRO [Concomitant]
     Dosage: 500 MG, BID
     Route: 048
  35. KLONOPIN [Concomitant]
  36. CISPLATIN [Concomitant]
     Indication: NON-SMALL CELL LUNG CANCER
     Dates: start: 20060501, end: 20061101
  37. PERIDEX [Concomitant]
  38. ACTONEL [Suspect]
  39. CARBOPLATIN [Concomitant]
     Indication: NON-SMALL CELL LUNG CANCER
     Dates: start: 20030801, end: 20040901
  40. TARCEVA [Concomitant]
     Indication: NON-SMALL CELL LUNG CANCER
     Dates: start: 20050901
  41. EFFEXOR [Concomitant]
     Dosage: 150 MG,DAILY
     Route: 048
  42. KEFZOL [Concomitant]
     Dosage: 1 G, UNK
  43. COLACE [Concomitant]
     Dosage: 100 MG, BID
  44. MORPHINE [Concomitant]
  45. ROMAZICON [Concomitant]
  46. CARAFATE [Concomitant]
     Dosage: 1 MG, TID

REACTIONS (68)
  - HYPERGLYCAEMIA [None]
  - SWELLING [None]
  - DIZZINESS [None]
  - WRIST FRACTURE [None]
  - INCONTINENCE [None]
  - APPETITE DISORDER [None]
  - MUSCULOSKELETAL PAIN [None]
  - AMNESIA [None]
  - OSTEOMYELITIS [None]
  - BRONCHOSPASM [None]
  - BONE DISORDER [None]
  - DISABILITY [None]
  - CONSTIPATION [None]
  - GASTROOESOPHAGEAL REFLUX DISEASE [None]
  - NECROSIS [None]
  - CHRONIC SINUSITIS [None]
  - RESTLESS LEGS SYNDROME [None]
  - ANXIETY [None]
  - RECTAL HAEMORRHAGE [None]
  - OSTEOPENIA [None]
  - OSTEOMYELITIS CHRONIC [None]
  - WEIGHT DECREASED [None]
  - RESPIRATORY FAILURE [None]
  - OSTEITIS [None]
  - INJURY [None]
  - PAIN [None]
  - HYPERTENSION [None]
  - ABDOMINAL PAIN [None]
  - TINNITUS [None]
  - EPISTAXIS [None]
  - DEPRESSION [None]
  - HYPOMAGNESAEMIA [None]
  - HYPOACUSIS [None]
  - DYSPNOEA [None]
  - HYPOXIA [None]
  - NEOPLASM MALIGNANT [None]
  - MALNUTRITION [None]
  - MAGNESIUM METABOLISM DISORDER [None]
  - EMPHYSEMA [None]
  - OSTEONECROSIS OF JAW [None]
  - SKIN ULCER [None]
  - OSTEORADIONECROSIS [None]
  - DYSPNOEA EXERTIONAL [None]
  - PSEUDOMEMBRANOUS COLITIS [None]
  - DYSTHYMIC DISORDER [None]
  - ORAL DISORDER [None]
  - METASTASES TO MENINGES [None]
  - RENAL FAILURE [None]
  - DYSPHAGIA [None]
  - NASAL CONGESTION [None]
  - ARTHRITIS [None]
  - HYPOAESTHESIA [None]
  - CHILLS [None]
  - PYREXIA [None]
  - BREATHING-RELATED SLEEP DISORDER [None]
  - DYSPEPSIA [None]
  - SUBARACHNOID HAEMORRHAGE [None]
  - ARTERIOSCLEROSIS CORONARY ARTERY [None]
  - SINUS TACHYCARDIA [None]
  - LUNG NEOPLASM MALIGNANT [None]
  - ERYTHEMA [None]
  - ANHEDONIA [None]
  - BACK PAIN [None]
  - HYPOKALAEMIA [None]
  - FALL [None]
  - WEIGHT INCREASED [None]
  - URTICARIA [None]
  - RESTRICTIVE PULMONARY DISEASE [None]
